FAERS Safety Report 11197139 (Version 3)
Quarter: 2016Q3

REPORT INFORMATION
  Report Type: Report from Study
  Country: US (occurrence: US)
  Receive Date: 20150617
  Receipt Date: 20160707
  Transmission Date: 20161109
  Serious: No
  Sender: FDA-Public Use
  Company Number: US-ARIAD PHARMACEUTICALS, INC-2014US003306

PATIENT

DRUGS (9)
  1. ICLUSIG [Suspect]
     Active Substance: PONATINIB
     Dosage: 30 MG, QD ON MON AND THURS
     Dates: start: 20140504
  2. OXYCODONE AND ACETAMINOPHEN [Concomitant]
     Active Substance: ACETAMINOPHEN\OXYCODONE HYDROCHLORIDE
     Indication: PRODUCT USED FOR UNKNOWN INDICATION
     Dosage: 5/325 MG
     Route: 048
  3. ICLUSIG [Suspect]
     Active Substance: PONATINIB
     Dosage: 15 MG QD ON TUES, WED, FRID, SAT, SUNUNK
  4. ASPIRIN. [Concomitant]
     Active Substance: ASPIRIN
     Indication: PRODUCT USED FOR UNKNOWN INDICATION
     Dosage: 81 MG, QD
     Route: 048
  5. ICLUSIG [Suspect]
     Active Substance: PONATINIB
     Dosage: 30 MG, QD
     Route: 048
  6. ICLUSIG [Suspect]
     Active Substance: PONATINIB
     Dosage: 15 MG, QD
     Route: 048
  7. ICLUSIG [Suspect]
     Active Substance: PONATINIB
     Indication: CHRONIC MYELOID LEUKAEMIA
     Dosage: 30 MG, QD
     Route: 048
     Dates: start: 20140428
  8. ICLUSIG [Suspect]
     Active Substance: PONATINIB
     Dosage: 15 MG, QD
     Route: 048
  9. CLONAZEPAM. [Concomitant]
     Active Substance: CLONAZEPAM
     Indication: PRODUCT USED FOR UNKNOWN INDICATION
     Dosage: 1 MG, UNK
     Route: 048

REACTIONS (45)
  - Hair texture abnormal [Unknown]
  - Neuropathy peripheral [Unknown]
  - Visual acuity reduced [Unknown]
  - Lack of satiety [Not Recovered/Not Resolved]
  - Melanocytic naevus [Unknown]
  - Diastolic dysfunction [Unknown]
  - Blood creatine phosphokinase MB increased [Not Recovered/Not Resolved]
  - Chest pain [Unknown]
  - Vomiting [Not Recovered/Not Resolved]
  - Hot flush [Unknown]
  - Diffuse alopecia [Unknown]
  - Palpitations [Unknown]
  - Skin disorder [Unknown]
  - Blood potassium increased [Unknown]
  - Mental status changes [Unknown]
  - Hyperhidrosis [Unknown]
  - Dysphagia [Unknown]
  - Headache [Not Recovered/Not Resolved]
  - Decreased appetite [Not Recovered/Not Resolved]
  - Photosensitivity reaction [Not Recovered/Not Resolved]
  - Rash [Unknown]
  - Asthenia [Not Recovered/Not Resolved]
  - Pruritus [Unknown]
  - Myalgia [Not Recovered/Not Resolved]
  - Ventricular extrasystoles [Not Recovered/Not Resolved]
  - Arthralgia [Unknown]
  - Constipation [Unknown]
  - Abdominal pain upper [Not Recovered/Not Resolved]
  - Urine output decreased [Unknown]
  - Blood creatine phosphokinase increased [Not Recovered/Not Resolved]
  - Pain in extremity [Not Recovered/Not Resolved]
  - Nausea [Unknown]
  - Abdominal pain [Unknown]
  - Muscular weakness [Not Recovered/Not Resolved]
  - Tremor [Unknown]
  - Bone pain [Not Recovered/Not Resolved]
  - Dyspnoea [Unknown]
  - Dizziness [Unknown]
  - Insomnia [Unknown]
  - Lipase increased [Recovered/Resolved]
  - Mitral valve incompetence [Unknown]
  - Depression [Unknown]
  - Fatigue [Not Recovered/Not Resolved]
  - Alanine aminotransferase increased [Unknown]
  - Neck pain [Unknown]
